FAERS Safety Report 19786229 (Version 2)
Quarter: 2021Q3

REPORT INFORMATION
  Report Type: Spontaneous
  Country: JP (occurrence: JP)
  Receive Date: 20210903
  Receipt Date: 20210910
  Transmission Date: 20211014
  Serious: Yes (Disabling, Other)
  Sender: FDA-Public Use
  Company Number: JP-REGENERON PHARMACEUTICALS, INC.-2021-81927

PATIENT

DRUGS (1)
  1. EYLEA [Suspect]
     Active Substance: AFLIBERCEPT
     Indication: GLAUCOMA
     Dosage: ONCE, ON AN AS?NEEDED BASIS (WHICH EYE WAS UNKNOWN)
     Route: 031

REACTIONS (2)
  - Blindness [Unknown]
  - Intraocular pressure increased [Unknown]
